FAERS Safety Report 14391033 (Version 1)
Quarter: 2018Q1

REPORT INFORMATION
  Report Type: Spontaneous
  Country: US (occurrence: US)
  Receive Date: 20180116
  Receipt Date: 20180116
  Transmission Date: 20180509
  Serious: Yes (Other)
  Sender: FDA-Public Use
  Company Number: US-PFIZER INC-2018013627

PATIENT
  Age: 61 Year
  Sex: Female

DRUGS (1)
  1. CHANTIX [Suspect]
     Active Substance: VARENICLINE TARTRATE
     Indication: SMOKING CESSATION THERAPY
     Dosage: UNK

REACTIONS (9)
  - Gastrooesophageal reflux disease [Unknown]
  - Flatulence [Unknown]
  - Mood altered [Unknown]
  - Condition aggravated [Unknown]
  - Tobacco user [Unknown]
  - Anxiety [Unknown]
  - Depression [Unknown]
  - Product use issue [Unknown]
  - Gastrointestinal disorder [Unknown]
